FAERS Safety Report 9166675 (Version 1)
Quarter: 2013Q1

REPORT INFORMATION
  Report Type: Spontaneous
  Country: US (occurrence: US)
  Receive Date: 20130315
  Receipt Date: 20130315
  Transmission Date: 20140127
  Serious: No
  Sender: FDA-Public Use
  Company Number: US-009507513-1303USA003205

PATIENT
  Sex: 0

DRUGS (3)
  1. JANUVIA [Suspect]
     Route: 048
  2. VICTOZA [Concomitant]
  3. METFORMIN [Concomitant]

REACTIONS (2)
  - Gastric disorder [Unknown]
  - Drug ineffective [Unknown]
